FAERS Safety Report 5072038-5 (Version None)
Quarter: 2006Q3

REPORT INFORMATION
  Report Type: 
  Country: None (occurrence: None)
  Receive Date: 20060807
  Receipt Date: 20060801
  Transmission Date: 20061208
  Serious: Yes (Hospitalization)
  Sender: FDA-Public Use
  Company Number: GB-AVENTIS-200618045GDDC

PATIENT
  Age: 54 Year
  Sex: Male
  Weight: 82 kg

DRUGS (3)
  1. DOCETAXEL [Suspect]
     Dates: start: 20060712, end: 20060712
  2. PREDNISOLONE [Suspect]
     Dates: start: 20060524
  3. ZOLEDRONIC ACID [Suspect]
     Dates: start: 20060712, end: 20060712

REACTIONS (6)
  - ANAEMIA [None]
  - CONFUSIONAL STATE [None]
  - DISEASE PROGRESSION [None]
  - GENERAL PHYSICAL HEALTH DETERIORATION [None]
  - INFECTION [None]
  - THERAPEUTIC AGENT TOXICITY [None]
